FAERS Safety Report 14991110 (Version 2)
Quarter: 2018Q2

REPORT INFORMATION
  Report Type: Spontaneous
  Country: DE (occurrence: DE)
  Receive Date: 20180608
  Receipt Date: 20180621
  Transmission Date: 20180711
  Serious: Yes (Hospitalization)
  Sender: FDA-Public Use
  Company Number: DE-TEVA-2018-DE-902222

PATIENT
  Age: 78 Year
  Sex: Female
  Weight: 65 kg

DRUGS (20)
  1. REMERGIL [Suspect]
     Active Substance: MIRTAZAPINE
     Dosage: 15 MILLIGRAM DAILY; 0-0-1-0
     Route: 048
  2. L-THYROXIN [Suspect]
     Active Substance: LEVOTHYROXINE SODIUM
     Dosage: .2 MILLIGRAM DAILY; 200 MG, 1-0-0-0
     Route: 048
  3. HYDROCHLOROTHIAZIDE. [Suspect]
     Active Substance: HYDROCHLOROTHIAZIDE
     Dosage: 12.5 MILLIGRAM DAILY; 1-0-0-0
     Route: 048
  4. ALDACTONE [Suspect]
     Active Substance: SPIRONOLACTONE
     Dosage: 50 MILLIGRAM DAILY; 1-0-0-0
     Route: 048
  5. RELVAR ELLIPTA [Concomitant]
     Active Substance: FLUTICASONE FUROATE\VILANTEROL TRIFENATATE
     Dosage: 184|22 ?G, 1-0-0-0
     Route: 055
  6. TOREM [Suspect]
     Active Substance: TORSEMIDE
     Dosage: 40 MILLIGRAM DAILY; 10 MG, 2-2-0-0
     Route: 048
  7. VOMACUR [Suspect]
     Active Substance: DIMENHYDRINATE
     Dosage: BEDARF
     Route: 048
  8. XARELTO [Concomitant]
     Active Substance: RIVAROXABAN
     Dosage: 20 MILLIGRAM DAILY; 1-0-0-0
     Route: 048
  9. ZEBETA [Suspect]
     Active Substance: BISOPROLOL FUMARATE
     Dosage: 1-0-1-0
     Route: 048
  10. TRAMAL [Concomitant]
     Active Substance: TRAMADOL
     Dosage: 20 TROPFEN, 1-0-1-0
     Route: 065
  11. CALCIUM D3 [Concomitant]
     Active Substance: CALCIUM\CHOLECALCIFEROL
     Dosage: 1 DOSAGE FORMS DAILY; 0-1-0-0
     Route: 048
  12. MELPERONE [Concomitant]
     Active Substance: MELPERONE
     Dosage: BEDARF
     Route: 048
  13. RAMIPRIL. [Suspect]
     Active Substance: RAMIPRIL
     Dosage: 2.5 MILLIGRAM DAILY; 1-0-0-0
     Route: 048
  14. MOVICOL [Suspect]
     Active Substance: POLYETHYLENE GLYCOL 3350\POTASSIUM CHLORIDE\SODIUM BICARBONATE\SODIUM CHLORIDE
     Dosage: 50 MILLIGRAM DAILY; 1-0-0-0
     Route: 048
  15. DIGITOXIN [Suspect]
     Active Substance: DIGITOXIN
     Dosage: .1 MILLIGRAM DAILY;  1-0-0-0
     Route: 048
  16. PREGABALIN. [Concomitant]
     Active Substance: PREGABALIN
     Dosage: 200 MILLIGRAM DAILY; 50 MG, 2-0-2-0
     Route: 048
  17. NOVALGIN [Concomitant]
     Dosage: 500 MILLIGRAM DAILY; 1-1-1-0
     Route: 048
  18. PANTOPRAZOL [Concomitant]
     Active Substance: PANTOPRAZOLE SODIUM
     Dosage: 40 MILLIGRAM DAILY;  0-0-1-0
     Route: 048
  19. SERTRALINE [Concomitant]
     Active Substance: SERTRALINE HYDROCHLORIDE
     Dosage: 100 MILLIGRAM DAILY;  1-0-0-0
     Route: 048
  20. SIMVASTATIN. [Concomitant]
     Active Substance: SIMVASTATIN
     Dosage: 40 MILLIGRAM DAILY;  0-0-1-0
     Route: 048

REACTIONS (2)
  - Dyspnoea [Unknown]
  - Atrial fibrillation [Unknown]
